FAERS Safety Report 9408196 (Version 2)
Quarter: 2013Q3

REPORT INFORMATION
  Report Type: Report from Study
  Country: DE (occurrence: DE)
  Receive Date: 20130718
  Receipt Date: 20130903
  Transmission Date: 20140515
  Serious: Yes (Hospitalization)
  Sender: FDA-Public Use
  Company Number: DE-ABBOTT-13P-062-1117725-00

PATIENT
  Age: 71 Year
  Sex: Male
  Weight: 118 kg

DRUGS (10)
  1. HUMIRA [Suspect]
     Indication: PSORIASIS
     Route: 058
     Dates: start: 20130430, end: 20130611
  2. HUMIRA [Suspect]
     Route: 058
     Dates: start: 20130701
  3. TORASEMID [Concomitant]
     Indication: PRODUCT USED FOR UNKNOWN INDICATION
  4. SEVIKAR HCT [Concomitant]
     Indication: PRODUCT USED FOR UNKNOWN INDICATION
     Dosage: 20 MG/ 5 MG / 12.5 MG
  5. PANTOPRAZOLE [Concomitant]
     Indication: PRODUCT USED FOR UNKNOWN INDICATION
  6. FENISTIL [Concomitant]
     Indication: PRODUCT USED FOR UNKNOWN INDICATION
  7. ARCOXIA [Concomitant]
     Indication: PRODUCT USED FOR UNKNOWN INDICATION
  8. KALINOR [Concomitant]
     Indication: PRODUCT USED FOR UNKNOWN INDICATION
  9. MARCUMAR [Concomitant]
     Indication: ATRIAL FIBRILLATION
  10. CONCOR [Concomitant]
     Indication: ATRIAL FIBRILLATION

REACTIONS (5)
  - Stasis dermatitis [Recovered/Resolved]
  - Erysipelas [Recovered/Resolved]
  - Lymphadenitis [Unknown]
  - Atrial fibrillation [Unknown]
  - Eosinophil count increased [Not Recovered/Not Resolved]
